FAERS Safety Report 5724616-5 (Version None)
Quarter: 2008Q2

REPORT INFORMATION
  Report Type: 
  Country: None (occurrence: None)
  Receive Date: 20080430
  Receipt Date: 20080430
  Transmission Date: 20081010
  Serious: No
  Sender: FDA-Public Use
  Company Number: None

PATIENT
  Age: 75 Year
  Sex: Female

DRUGS (6)
  1. FLUORESCEIN [Suspect]
     Indication: ANGIOGRAM
     Dosage: 500 MG IVP X1
     Route: 042
  2. LEVOTHYROXINE SODIUM [Concomitant]
  3. MEVACOR [Concomitant]
  4. DIOVAN [Concomitant]
  5. LANTUS [Concomitant]
  6. NOVOLOG [Concomitant]

REACTIONS (11)
  - BLOOD PRESSURE DECREASED [None]
  - COLD SWEAT [None]
  - DIARRHOEA [None]
  - DRUG DOSE OMISSION [None]
  - HEART RATE DECREASED [None]
  - HYPERGLYCAEMIA [None]
  - NAUSEA [None]
  - OXYGEN SATURATION DECREASED [None]
  - PRURITUS [None]
  - THROAT IRRITATION [None]
  - TREATMENT NONCOMPLIANCE [None]
